FAERS Safety Report 5046357-2 (Version None)
Quarter: 2006Q2

REPORT INFORMATION
  Report Type: 
  Country: None (occurrence: None)
  Receive Date: 20060629
  Receipt Date: 20060614
  Transmission Date: 20061013
  Serious: Yes (Hospitalization, Other)
  Sender: FDA-Public Use
  Company Number: 2005US001667

PATIENT
  Age: 62 Year
  Sex: Male

DRUGS (24)
  1. PROGRAF [Suspect]
     Indication: PROPHYLAXIS AGAINST TRANSPLANT REJECTION
     Dosage: 1.5 MG, BID, ORAL
     Route: 048
     Dates: start: 20050115
  2. PROGRAF [Suspect]
     Indication: PROPHYLAXIS AGAINST TRANSPLANT REJECTION
     Dosage: 1.5 MG, BID, ORAL
     Route: 048
     Dates: start: 20050118
  3. MYCOPHENOLATE MOFETIL [Suspect]
     Indication: PROPHYLAXIS AGAINST TRANSPLANT REJECTION
     Dosage: 1000 MG, BID, ORAL; 500 MG, UID/QD
     Route: 048
     Dates: start: 20050112, end: 20051101
  4. MYCOPHENOLATE MOFETIL [Suspect]
     Indication: PROPHYLAXIS AGAINST TRANSPLANT REJECTION
     Dosage: 1000 MG, BID, ORAL; 500 MG, UID/QD
     Route: 048
     Dates: start: 20051108
  5. PREDNISONE TAB [Suspect]
     Indication: PROPHYLAXIS AGAINST TRANSPLANT REJECTION
     Dosage: SEE IMAGE
     Route: 048
     Dates: start: 20050116
  6. PREDNISONE TAB [Suspect]
     Indication: PROPHYLAXIS AGAINST TRANSPLANT REJECTION
     Dosage: SEE IMAGE
     Route: 048
     Dates: start: 20050711
  7. DAPSONE [Concomitant]
  8. MORPHINE [Concomitant]
  9. NYSTATIN [Concomitant]
  10. PANTOPRAZOLE SODIUM [Concomitant]
  11. INSULIN GLARGINE (INSULIN GLARGINE) [Concomitant]
  12. VALGANCICLOVIR HCL [Concomitant]
  13. NIFEDIPINE [Concomitant]
  14. DOXAZOSIN (DOXAZOSIN) [Concomitant]
  15. AVODART (DUTASERIDE) [Concomitant]
  16. INSULIN [Concomitant]
  17. ASPIRIN [Concomitant]
  18. LIPITOR [Concomitant]
  19. PROTONIX [Concomitant]
  20. ATENOLOL [Concomitant]
  21. CALCIUM CARBONATE [Concomitant]
  22. VITAMIN D [Concomitant]
  23. ISOPHANE INSULIN (ISOPHANE INSULIN) [Concomitant]
  24. INSULIN [Concomitant]

REACTIONS (7)
  - APHTHOUS STOMATITIS [None]
  - CULTURE URINE POSITIVE [None]
  - INFECTION [None]
  - KIDNEY TRANSPLANT REJECTION [None]
  - NEPHRITIS INTERSTITIAL [None]
  - NEUTROPENIA [None]
  - WHITE BLOOD CELL COUNT DECREASED [None]
